FAERS Safety Report 22186185 (Version 1)
Quarter: 2023Q2

REPORT INFORMATION
  Report Type: Spontaneous
  Country: US (occurrence: US)
  Receive Date: 20230407
  Receipt Date: 20230407
  Transmission Date: 20230721
  Serious: Yes (Other)
  Sender: FDA-Public Use
  Company Number: ALC2023US001628

PATIENT
  Age: 67 Year
  Sex: Female

DRUGS (2)
  1. GENTEAL TEARS [Suspect]
     Active Substance: DEXTRAN 70\HYPROMELLOSE 2910 (4000 MPA.S)
     Indication: Dry eye
     Dosage: USED ONE OR TWO DROPS EACH EYE 2-3 TIMES A DAY FOR TWO DAYS
     Route: 047
  2. GENTEAL TEARS [Suspect]
     Active Substance: DEXTRAN 70\HYPROMELLOSE 2910 (4000 MPA.S)
     Indication: Eye irritation

REACTIONS (1)
  - Uveitis [Recovered/Resolved]
